FAERS Safety Report 19437124 (Version 2)
Quarter: 2021Q3

REPORT INFORMATION
  Report Type: Report from Study
  Country: US (occurrence: US)
  Receive Date: 20210618
  Receipt Date: 20210709
  Transmission Date: 20211014
  Serious: Yes (Hospitalization, Other)
  Sender: FDA-Public Use
  Company Number: US-PFIZER INC-2021671853

PATIENT
  Age: 57 Year
  Sex: Male
  Weight: 95.24 kg

DRUGS (19)
  1. ORENITRAM [Suspect]
     Active Substance: TREPROSTINIL
     Dosage: UNK
     Route: 048
  2. ORENITRAM [Suspect]
     Active Substance: TREPROSTINIL
     Dosage: 2.875 MG, 3X/DAY
     Route: 048
  3. CITRACAL + D [CALCIUM CITRATE;COLECALCIFEROL] [Concomitant]
     Active Substance: CALCIUM CITRATE\CHOLECALCIFEROL
     Dosage: UNK
  4. EPIPEN [Concomitant]
     Active Substance: EPINEPHRINE
     Dosage: UNK
  5. ORENITRAM [Suspect]
     Active Substance: TREPROSTINIL
     Dosage: 3 MG, 3X/DAY
     Route: 048
  6. LASIX [Concomitant]
     Active Substance: FUROSEMIDE
  7. ALDACTONE [Concomitant]
     Active Substance: SPIRONOLACTONE
  8. TOZINAMERAN. [Suspect]
     Active Substance: TOZINAMERAN
     Indication: COVID-19 IMMUNISATION
     Dosage: DOSE NUMBER UNKNOWN, SINGLE
  9. LETAIRIS [Concomitant]
     Active Substance: AMBRISENTAN
     Dosage: 20 MG
  10. PLAQUENIL [Concomitant]
     Active Substance: HYDROXYCHLOROQUINE SULFATE
  11. NIFEDIPINE. [Suspect]
     Active Substance: NIFEDIPINE
     Dosage: UNK
  12. REVATIO [Concomitant]
     Active Substance: SILDENAFIL CITRATE
     Dosage: 20 MG
  13. LEXAPRO [Concomitant]
     Active Substance: ESCITALOPRAM OXALATE
     Dosage: UNK
  14. ORENITRAM [Suspect]
     Active Substance: TREPROSTINIL
     Dosage: 3.875 MG, 3X/DAY
     Route: 048
  15. PEPCID [Concomitant]
     Active Substance: FAMOTIDINE
  16. LANOXIN [Concomitant]
     Active Substance: DIGOXIN
     Dosage: UNK
  17. FOLVITE [FOLIC ACID] [Concomitant]
  18. ELIQUIS [Concomitant]
     Active Substance: APIXABAN
     Dosage: UNK
  19. MEDROL [Suspect]
     Active Substance: METHYLPREDNISOLONE
     Dosage: 1.5 TABLETS BY MOUTH, DAILY, QD
     Route: 048

REACTIONS (16)
  - COVID-19 pneumonia [Recovered/Resolved]
  - Pyrexia [Recovered/Resolved]
  - Blister [Recovered/Resolved]
  - Mitral valve incompetence [Unknown]
  - Systemic lupus erythematosus [Unknown]
  - Oedema peripheral [Not Recovered/Not Resolved]
  - Influenza [Recovered/Resolved]
  - Steroid diabetes [Recovered/Resolved]
  - Weight fluctuation [Not Recovered/Not Resolved]
  - Fluid overload [Unknown]
  - Acute respiratory failure [Recovered/Resolved]
  - Drug ineffective [Recovered/Resolved]
  - Pulmonary arterial hypertension [Recovered/Resolved]
  - Rash [Recovered/Resolved]
  - Diarrhoea [Recovered/Resolved]
  - Limb discomfort [Recovering/Resolving]
